FAERS Safety Report 23217820 (Version 3)
Quarter: 2023Q4

REPORT INFORMATION
  Report Type: Spontaneous
  Country: US (occurrence: US)
  Receive Date: 20231122
  Receipt Date: 20231215
  Transmission Date: 20240110
  Serious: No
  Sender: FDA-Public Use
  Company Number: US-Calliditas-2023CAL01498

PATIENT
  Age: 36 Year
  Sex: Female

DRUGS (2)
  1. TARPEYO [Suspect]
     Active Substance: BUDESONIDE
     Indication: Haematuria
     Dosage: 16 MG (4 MG CAPSULES) ONCE DAILY
     Route: 048
     Dates: start: 20230519
  2. IRON [Concomitant]
     Active Substance: IRON
     Indication: IgA nephropathy

REACTIONS (3)
  - Back pain [Recovered/Resolved]
  - Asthenia [Unknown]
  - Arthralgia [Unknown]
